FAERS Safety Report 9056066 (Version 1)
Quarter: 2013Q1

REPORT INFORMATION
  Report Type: Spontaneous
  Country: ES (occurrence: ES)
  Receive Date: 20130205
  Receipt Date: 20130205
  Transmission Date: 20140127
  Serious: Yes (Hospitalization, Other)
  Sender: FDA-Public Use
  Company Number: ES-BRISTOL-MYERS SQUIBB COMPANY-17325689

PATIENT
  Age: 85 Year
  Sex: Female

DRUGS (6)
  1. ONGLYZA TABS 5 MG [Suspect]
     Indication: TYPE 2 DIABETES MELLITUS
     Route: 048
     Dates: start: 20120927
  2. METFORMIN HCL [Interacting]
     Indication: TYPE 2 DIABETES MELLITUS
     Route: 048
     Dates: start: 2010
  3. EUGLUCON [Interacting]
     Indication: TYPE 2 DIABETES MELLITUS
     Route: 048
     Dates: start: 2010, end: 20120927
  4. FUROSEMIDE [Concomitant]
     Route: 048
  5. ENALAPRIL [Concomitant]
     Indication: HYPERTENSION
     Route: 048
  6. SINTROM [Concomitant]
     Route: 048

REACTIONS (2)
  - Hypoglycaemia [Recovered/Resolved]
  - Drug interaction [Unknown]
